FAERS Safety Report 18192190 (Version 1)
Quarter: 2020Q3

REPORT INFORMATION
  Report Type: Spontaneous
  Country: US (occurrence: US)
  Receive Date: 20200824
  Receipt Date: 20200824
  Transmission Date: 20201103
  Serious: Yes (Hospitalization)
  Sender: FDA-Public Use
  Company Number: None

PATIENT
  Age: 74 Year
  Sex: Female

DRUGS (1)
  1. IMATINIB, 100 MG [Suspect]
     Active Substance: IMATINIB
     Dosage: TAKE 3 TABLETS BY MOUTH DAILY WITH FOOD AND SWALLOW WHOLE  AVOID GRAPEFRUT PRODUCTS
     Route: 048
     Dates: start: 20200415

REACTIONS (1)
  - Infection [None]

NARRATIVE: CASE EVENT DATE: 20200817
